FAERS Safety Report 20491012 (Version 1)
Quarter: 2022Q1

REPORT INFORMATION
  Report Type: Spontaneous
  Country: NL (occurrence: NL)
  Receive Date: 20220218
  Receipt Date: 20220218
  Transmission Date: 20220423
  Serious: Yes (Other)
  Sender: FDA-Public Use
  Company Number: None

PATIENT
  Sex: Male
  Weight: 95 kg

DRUGS (1)
  1. CIPROFLOXACIN [Suspect]
     Active Substance: CIPROFLOXACIN
     Indication: Urinary tract infection
     Dosage: 1 DOSAGE FORM, BID (2X A DAY)
     Dates: start: 20220103, end: 20220116

REACTIONS (2)
  - Urinary tract obstruction [Recovered/Resolved]
  - Bladder dysfunction [Recovered/Resolved]
